FAERS Safety Report 25569788 (Version 2)
Quarter: 2025Q3

REPORT INFORMATION
  Report Type: Spontaneous
  Country: US (occurrence: US)
  Receive Date: 20250717
  Receipt Date: 20250724
  Transmission Date: 20251021
  Serious: Yes (Hospitalization, Other)
  Sender: UPSHER SMITH LABORATORIES
  Company Number: US-UPSHER-SMITH LABORATORIES, INC.-20240900124

PATIENT
  Sex: Male
  Weight: 8.617 kg

DRUGS (4)
  1. VIGADRONE [Suspect]
     Active Substance: VIGABATRIN
     Indication: Infantile spasms
     Route: 048
     Dates: start: 20240419
  2. VIGADRONE [Suspect]
     Active Substance: VIGABATRIN
     Route: 048
     Dates: start: 2024
  3. VIGADRONE [Suspect]
     Active Substance: VIGABATRIN
     Route: 065
     Dates: start: 20241107, end: 202411
  4. LEVETIRACETAM [Concomitant]
     Active Substance: LEVETIRACETAM
     Indication: Product used for unknown indication
     Route: 065

REACTIONS (4)
  - Infantile spasms [Recovering/Resolving]
  - Agitation [Unknown]
  - Somnolence [Not Recovered/Not Resolved]
  - Product solubility abnormal [Unknown]

NARRATIVE: CASE EVENT DATE: 20240101
